FAERS Safety Report 13500545 (Version 3)
Quarter: 2017Q2

REPORT INFORMATION
  Report Type: Report from Study
  Country: US (occurrence: US)
  Receive Date: 20170501
  Receipt Date: 20170626
  Transmission Date: 20170830
  Serious: Yes (Other)
  Sender: FDA-Public Use
  Company Number: US-GILEAD-2017-0268157

PATIENT
  Age: 57 Year
  Sex: Male
  Weight: 76 kg

DRUGS (7)
  1. VITAMIN B [Concomitant]
     Active Substance: VITAMIN B
  2. THIAMINE MONONITRATE [Concomitant]
     Active Substance: THIAMINE MONONITRATE
  3. FOLIC ACID. [Concomitant]
     Active Substance: FOLIC ACID
  4. ALBUTEROL                          /00139501/ [Concomitant]
     Active Substance: ALBUTEROL
  5. AMBRISENTAN [Suspect]
     Active Substance: AMBRISENTAN
     Indication: PULMONARY ARTERIAL HYPERTENSION
     Dosage: 5 MG, UNK
     Route: 048
     Dates: start: 20161227
  6. PROTONIX                           /00661201/ [Concomitant]
     Active Substance: OMEPRAZOLE
  7. AMBRISENTAN [Suspect]
     Active Substance: AMBRISENTAN
     Indication: SPHEROCYTIC ANAEMIA

REACTIONS (3)
  - Appetite disorder [Unknown]
  - Weight increased [Unknown]
  - Coronary artery disease [Recovered/Resolved]

NARRATIVE: CASE EVENT DATE: 20170420
